FAERS Safety Report 5493331-8 (Version None)
Quarter: 2007Q4

REPORT INFORMATION
  Report Type: 
  Country: None (occurrence: None)
  Receive Date: 20071023
  Receipt Date: 20070710
  Transmission Date: 20080405
  Serious: No
  Sender: FDA-Public Use
  Company Number: US-BRISTOL-MYERS SQUIBB COMPANY-13840103

PATIENT
  Sex: Female
  Weight: 47 kg

DRUGS (2)
  1. KENALOG-40 [Suspect]
     Indication: URTICARIA
     Dates: start: 20070423
  2. VITAMIN B [Concomitant]

REACTIONS (5)
  - ABDOMINAL PAIN [None]
  - ALOPECIA [None]
  - ANXIETY [None]
  - CONTUSION [None]
  - VAGINAL HAEMORRHAGE [None]
